FAERS Safety Report 4467275-4 (Version None)
Quarter: 2004Q4

REPORT INFORMATION
  Report Type: 
  Country: None (occurrence: None)
  Receive Date: 20041006
  Receipt Date: 20030604
  Transmission Date: 20050328
  Serious: Yes (Other)
  Sender: FDA-Public Use
  Company Number: US-GLAXOSMITHKLINE-A0411429A

PATIENT
  Age: 30 Year
  Sex: Female

DRUGS (3)
  1. PAXIL [Suspect]
     Indication: CLAUSTROPHOBIA
     Dosage: 20MG UNKNOWN
     Route: 065
  2. PAXIL [Suspect]
     Dosage: 12.5MG UNKNOWN
     Route: 065
  3. BIRTH CONTROL PILLS [Concomitant]
     Route: 065

REACTIONS (13)
  - ADVERSE DRUG REACTION [None]
  - ANXIETY [None]
  - BALANCE DISORDER [None]
  - CRYING [None]
  - DEPENDENCE [None]
  - DIZZINESS [None]
  - EMOTIONAL DISTRESS [None]
  - FATIGUE [None]
  - FEELING COLD [None]
  - MALAISE [None]
  - NAUSEA [None]
  - PAROSMIA [None]
  - SUICIDAL IDEATION [None]
